FAERS Safety Report 6645883-X (Version None)
Quarter: 2010Q1

REPORT INFORMATION
  Report Type: 
  Country: None (occurrence: None)
  Receive Date: 20100318
  Receipt Date: 20100308
  Transmission Date: 20100710
  Serious: Yes (Disabling)
  Sender: FDA-Public Use
  Company Number: 2010SP014634

PATIENT
  Age: 51 Year
  Sex: Female

DRUGS (2)
  1. PEG-INTRON [Suspect]
     Indication: HEPATITIS C
     Dosage: SC
     Route: 058
     Dates: start: 20091001
  2. RIBAPAK [Suspect]
     Indication: HEPATITIS C
     Dosage: PO
     Route: 048
     Dates: start: 20091001

REACTIONS (24)
  - AMENORRHOEA [None]
  - BLOOD PRESSURE INCREASED [None]
  - BURNING SENSATION [None]
  - CHEST PAIN [None]
  - COLD SWEAT [None]
  - DEPRESSED MOOD [None]
  - DIZZINESS [None]
  - EYE SWELLING [None]
  - HEADACHE [None]
  - HEART RATE INCREASED [None]
  - HOT FLUSH [None]
  - HYPOAESTHESIA [None]
  - MOOD SWINGS [None]
  - MUSCLE SPASMS [None]
  - MUSCULOSKELETAL PAIN [None]
  - MYALGIA [None]
  - NERVOUSNESS [None]
  - OCULAR HYPERAEMIA [None]
  - OCULAR ICTERUS [None]
  - ORAL HERPES [None]
  - PAIN [None]
  - PARAESTHESIA [None]
  - PYREXIA [None]
  - SWELLING [None]
